FAERS Safety Report 7529425-2 (Version None)
Quarter: 2011Q2

REPORT INFORMATION
  Report Type: 
  Country: None (occurrence: None)
  Receive Date: 20110607
  Receipt Date: 20110531
  Transmission Date: 20111010
  Serious: Yes (Hospitalization)
  Sender: FDA-Public Use
  Company Number: FI-JNJFOC-20110600106

PATIENT
  Age: 37 Year
  Sex: Female

DRUGS (5)
  1. RISPERIDONE [Suspect]
     Route: 048
     Dates: end: 20110425
  2. RISPERIDONE [Suspect]
     Route: 048
     Dates: start: 20110502
  3. RISPERIDONE [Suspect]
     Indication: SCHIZOAFFECTIVE DISORDER
     Route: 048
     Dates: start: 20110428
  4. RISPERIDONE [Suspect]
     Route: 048
     Dates: start: 20060101
  5. RISPERIDONE [Suspect]
     Route: 048
     Dates: end: 20110418

REACTIONS (1)
  - HOSPITALISATION [None]
